FAERS Safety Report 13619141 (Version 1)
Quarter: 2017Q2

REPORT INFORMATION
  Report Type: Spontaneous
  Country: US (occurrence: US)
  Receive Date: 20170606
  Receipt Date: 20170606
  Transmission Date: 20170830
  Serious: No
  Sender: FDA-Public Use
  Company Number: US-AMGEN-USASP2016126035

PATIENT
  Age: 86 Year
  Sex: Male

DRUGS (3)
  1. EPOGEN [Suspect]
     Active Substance: ERYTHROPOIETIN
     Indication: NEPHROGENIC ANAEMIA
     Dosage: 7000 TO 10000 UNITS, MONDAY, WEDNESDAY, AND FRIDAY
     Route: 065
     Dates: start: 2013
  2. MIRCERA [Concomitant]
     Active Substance: METHOXY POLYETHYLENE GLYCOL-EPOETIN BETA
     Dosage: 225 MG, EVERY TWO WEEKS
  3. EPOGEN [Suspect]
     Active Substance: ERYTHROPOIETIN
     Dosage: 20,000 UNIT, (MONDAY, WEDNESDAY, AND FRIDAY)
     Route: 065
     Dates: start: 201605

REACTIONS (1)
  - Drug ineffective [Not Recovered/Not Resolved]
